FAERS Safety Report 7436764-2 (Version None)
Quarter: 2011Q2

REPORT INFORMATION
  Report Type: 
  Country: None (occurrence: None)
  Receive Date: 20110426
  Receipt Date: 20110330
  Transmission Date: 20111010
  Serious: No
  Sender: FDA-Public Use
  Company Number: US-B.I. PHARMACEUTICALS,INC./RIDGEFIELD-2011-BP-09596BP

PATIENT
  Age: 59 Year
  Sex: Male

DRUGS (5)
  1. DULERA TABLET [Concomitant]
     Indication: CHRONIC OBSTRUCTIVE PULMONARY DISEASE
     Route: 055
     Dates: start: 20110101
  2. ASPIRIN [Concomitant]
     Indication: CORONARY ARTERY DISEASE
     Dosage: 325 MG
     Route: 048
     Dates: start: 20050301
  3. DULERA TABLET [Concomitant]
     Indication: DYSPNOEA
  4. NITROGLYCERIN [Concomitant]
     Route: 060
     Dates: start: 20050301
  5. SPIRIVA [Suspect]
     Indication: CHRONIC OBSTRUCTIVE PULMONARY DISEASE
     Dosage: 18 MCG
     Route: 055
     Dates: start: 20070101

REACTIONS (1)
  - DRUG INEFFECTIVE [None]
